FAERS Safety Report 17594911 (Version 1)
Quarter: 2020Q1

REPORT INFORMATION
  Report Type: Report from Study
  Country: None (occurrence: US)
  Receive Date: 20200328
  Receipt Date: 20200328
  Transmission Date: 20200409
  Serious: Yes (Other)
  Sender: FDA-Public Use
  Company Number: US-ABBVIE-19K-163-3008638-00

PATIENT
  Age: 64 Year
  Sex: Female

DRUGS (5)
  1. HUMIRA [Suspect]
     Active Substance: ADALIMUMAB
     Indication: CROHN^S DISEASE
     Dosage: CITRATE FREE
     Route: 058
  2. TYMLOS [Concomitant]
     Active Substance: ABALOPARATIDE
     Indication: OSTEOPOROSIS
  3. IMIPRAMINE [Concomitant]
     Active Substance: IMIPRAMINE
     Indication: PRODUCT USED FOR UNKNOWN INDICATION
  4. ATORVASTATIN [Concomitant]
     Active Substance: ATORVASTATIN
     Indication: BLOOD CHOLESTEROL INCREASED
  5. ZETIA [Concomitant]
     Active Substance: EZETIMIBE
     Indication: BLOOD CHOLESTEROL INCREASED

REACTIONS (8)
  - Road traffic accident [Recovering/Resolving]
  - Contusion [Recovering/Resolving]
  - Neck injury [Recovering/Resolving]
  - Back injury [Not Recovered/Not Resolved]
  - Post-traumatic neck syndrome [Recovering/Resolving]
  - Myalgia [Recovering/Resolving]
  - Burns third degree [Recovering/Resolving]
  - Joint injury [Not Recovered/Not Resolved]

NARRATIVE: CASE EVENT DATE: 20190810
